FAERS Safety Report 10838820 (Version 1)
Quarter: 2015Q1

REPORT INFORMATION
  Report Type: Report from Study
  Country: US (occurrence: US)
  Receive Date: 20150219
  Receipt Date: 20150219
  Transmission Date: 20150721
  Serious: No
  Sender: FDA-Public Use
  Company Number: US-ABBVIE-14P-163-1224198-00

PATIENT
  Age: 37 Year
  Sex: Male

DRUGS (3)
  1. FLONASE [Concomitant]
     Active Substance: FLUTICASONE PROPIONATE
     Indication: PRODUCT USED FOR UNKNOWN INDICATION
  2. HUMIRA [Suspect]
     Active Substance: ADALIMUMAB
     Indication: COLITIS ULCERATIVE
     Dates: start: 20140219, end: 201403
  3. HUMIRA [Suspect]
     Active Substance: ADALIMUMAB
     Dates: start: 20140326

REACTIONS (3)
  - Inappropriate schedule of drug administration [Unknown]
  - Drug dispensing error [Unknown]
  - Cough [Not Recovered/Not Resolved]

NARRATIVE: CASE EVENT DATE: 201402
